FAERS Safety Report 6066965-X (Version None)
Quarter: 2009Q1

REPORT INFORMATION
  Report Type: 
  Country: None (occurrence: None)
  Receive Date: 20090205
  Receipt Date: 20081216
  Transmission Date: 20090719
  Serious: No
  Sender: FDA-Public Use
  Company Number: US-ABBOTT-08P-163-0493223-00

PATIENT
  Sex: Male

DRUGS (6)
  1. VICODIN [Suspect]
     Indication: BACK PAIN
  2. PERCOCET [Suspect]
     Indication: BACK PAIN
     Route: 048
  3. OXYCONTIN [Suspect]
     Indication: BACK PAIN
  4. LORCET-HD [Suspect]
     Indication: BACK PAIN
  5. LORTAB [Suspect]
     Indication: BACK PAIN
  6. OXYCODONE HCL [Suspect]
     Indication: BACK PAIN

REACTIONS (1)
  - DRUG EFFECT DECREASED [None]
